FAERS Safety Report 8303780-8 (Version None)
Quarter: 2012Q2

REPORT INFORMATION
  Report Type: 
  Country: None (occurrence: None)
  Receive Date: 20120423
  Receipt Date: 20120413
  Transmission Date: 20120825
  Serious: Yes (Hospitalization, Other)
  Sender: FDA-Public Use
  Company Number: PHHY2012LB032396

PATIENT
  Age: 17 Year
  Sex: Female

DRUGS (5)
  1. LEVETIRACETAM [Concomitant]
     Dosage: 1000 MG, BID
     Route: 048
  2. TOPIRAMATE [Concomitant]
     Dosage: 25 MG, BID
     Route: 048
  3. VALPROATE SODIUM [Concomitant]
     Dosage: 1000 MG, BID
     Route: 048
  4. CARBAMAZEPINE [Suspect]
     Dosage: 600 MG, DAILY (ADMINISTERED ON A TWICE DAILY SCHEDULE)
     Route: 048
  5. CARBAMAZEPINE [Suspect]
     Dosage: 400 MG, DDAILY
     Route: 048

REACTIONS (11)
  - UPPER RESPIRATORY TRACT INFECTION [None]
  - ECCHYMOSIS [None]
  - COGNITIVE DISORDER [None]
  - THROMBOCYTOPENIA [None]
  - HAEMATURIA [None]
  - ANTICONVULSANT DRUG LEVEL INCREASED [None]
  - IDIOPATHIC THROMBOCYTOPENIC PURPURA [None]
  - PARTIAL SEIZURES [None]
  - RASH [None]
  - PETECHIAE [None]
  - C-REACTIVE PROTEIN [None]
